FAERS Safety Report 9229124 (Version 1)
Quarter: 2013Q2

REPORT INFORMATION
  Report Type: Other
  Country: GB (occurrence: GB)
  Receive Date: 20130412
  Receipt Date: 20130412
  Transmission Date: 20140414
  Serious: Yes (Other)
  Sender: FDA-Public Use
  Company Number: GB-ACTAVIS-2013-06082

PATIENT
  Age: 86 Year
  Sex: Male
  Weight: 83 kg

DRUGS (3)
  1. DONEPEZIL HYDROCHLORIDE (UNKNOWN) [Suspect]
     Indication: DEMENTIA
     Dosage: 5MG
     Route: 048
     Dates: start: 20120911
  2. DONEPEZIL HYDROCHLORIDE (UNKNOWN) [Suspect]
     Dosage: 10MG
     Route: 048
     Dates: start: 20121017, end: 20130222
  3. VITAMIN B12                        /00056201/ [Concomitant]
     Indication: PRODUCT USED FOR UNKNOWN INDICATION
     Dosage: UNKNOWN
     Route: 065

REACTIONS (1)
  - Rash [Unknown]
